FAERS Safety Report 9613564 (Version 1)
Quarter: 2013Q4

REPORT INFORMATION
  Report Type: Spontaneous
  Country: US (occurrence: US)
  Receive Date: 20131010
  Receipt Date: 20131010
  Transmission Date: 20140711
  Serious: Yes (Death, Hospitalization, Other)
  Sender: FDA-Public Use
  Company Number: US-TEVA-437222USA

PATIENT
  Age: 78 Year
  Sex: Male

DRUGS (1)
  1. METHYLPREDNISOLONE [Suspect]
     Indication: BACK PAIN
     Route: 008

REACTIONS (5)
  - Meningitis exserohilum [Fatal]
  - Subarachnoid haemorrhage [Fatal]
  - Product contamination microbial [Fatal]
  - Unresponsive to stimuli [Unknown]
  - Ischaemic stroke [Not Recovered/Not Resolved]
